FAERS Safety Report 14980488 (Version 1)
Quarter: 2018Q2

REPORT INFORMATION
  Report Type: Spontaneous
  Country: FR (occurrence: FR)
  Receive Date: 20180606
  Receipt Date: 20180606
  Transmission Date: 20180711
  Serious: Yes (Other)
  Sender: FDA-Public Use
  Company Number: FR-BAYER-2018-058548

PATIENT
  Age: 24 Year
  Sex: Female

DRUGS (1)
  1. JAYDESS [Suspect]
     Active Substance: LEVONORGESTREL
     Indication: CONTRACEPTION
     Dosage: 14 MCG/24HR, CONT
     Route: 015

REACTIONS (5)
  - Vomiting [None]
  - Drug ineffective [None]
  - Diarrhoea [None]
  - Peritoneal haemorrhage [None]
  - Ectopic pregnancy [None]

NARRATIVE: CASE EVENT DATE: 20180126
